FAERS Safety Report 9931035 (Version 1)
Quarter: 2014Q1

REPORT INFORMATION
  Report Type: Spontaneous
  Country: JP (occurrence: JP)
  Receive Date: 20140227
  Receipt Date: 20140227
  Transmission Date: 20141002
  Serious: Yes (Death)
  Sender: FDA-Public Use
  Company Number: PHHY2014JP023242

PATIENT
  Age: 86 Year
  Sex: Male

DRUGS (8)
  1. IMATINIB [Suspect]
     Indication: ACUTE LEUKAEMIA IN REMISSION
  2. CYCLOPHOSPHAMIDE [Suspect]
     Indication: ACUTE LEUKAEMIA IN REMISSION
  3. VINCRISTINE [Suspect]
     Indication: ACUTE LEUKAEMIA IN REMISSION
  4. DOXORUBICIN [Suspect]
     Indication: ACUTE LEUKAEMIA IN REMISSION
  5. DEXAMETHASONE [Suspect]
     Indication: ACUTE LEUKAEMIA IN REMISSION
  6. TRIMETHOPRIM SULFAMETHOXAZOLE [Concomitant]
     Indication: PROPHYLAXIS
  7. MEROPENEM [Concomitant]
  8. MINOCYCLINE [Concomitant]

REACTIONS (2)
  - Pneumonia [Fatal]
  - Stenotrophomonas infection [Fatal]
